FAERS Safety Report 18206209 (Version 1)
Quarter: 2020Q3

REPORT INFORMATION
  Report Type: Spontaneous
  Country: US (occurrence: US)
  Receive Date: 20200828
  Receipt Date: 20200828
  Transmission Date: 20201103
  Serious: No
  Sender: FDA-Public Use
  Company Number: US-APOTEX-2020AP015555

PATIENT
  Age: 30 Year
  Sex: Female

DRUGS (3)
  1. SULFAMETHOXAZOLE;TRIMETHOPRIM [Concomitant]
     Active Substance: SULFAMETHOXAZOLE\TRIMETHOPRIM
     Indication: MYCOBACTERIUM FORTUITUM INFECTION
     Dosage: UNK
     Route: 048
  2. LEVOFLOXACIN. [Suspect]
     Active Substance: LEVOFLOXACIN
     Indication: MYCOBACTERIUM FORTUITUM INFECTION
     Dosage: UNK
     Route: 048
  3. LINEZOLID. [Concomitant]
     Active Substance: LINEZOLID
     Indication: MYCOBACTERIUM FORTUITUM INFECTION
     Dosage: UNK
     Route: 048

REACTIONS (1)
  - Tendon pain [Recovered/Resolved]
